FAERS Safety Report 4627303-X (Version None)
Quarter: 2005Q2

REPORT INFORMATION
  Report Type: 
  Country: None (occurrence: None)
  Receive Date: 20050405
  Receipt Date: 20050401
  Transmission Date: 20051028
  Serious: No
  Sender: FDA-Public Use
  Company Number: CA-BOEHRINGER INGELHEIM PHARMACEUTICALS, INC.-2005-BP-05430RO

PATIENT
  Age: 12 Year
  Sex: Male

DRUGS (1)
  1. AZATHIOPRINE [Suspect]
     Indication: CROHN'S DISEASE
     Dosage: 75 MG/DAY
     Route: 048

REACTIONS (11)
  - BLOOD PRESSURE DECREASED [None]
  - BLOOD TRIGLYCERIDES INCREASED [None]
  - BODY TEMPERATURE INCREASED [None]
  - BONE MARROW DEPRESSION [None]
  - CYTOMEGALOVIRUS INFECTION [None]
  - EPSTEIN-BARR VIRUS ANTIGEN POSITIVE [None]
  - HISTIOCYTOSIS HAEMATOPHAGIC [None]
  - HYPOALBUMINAEMIA [None]
  - LIVER TENDERNESS [None]
  - PARVOVIRUS B19 SEROLOGY POSITIVE [None]
  - SERUM FERRITIN INCREASED [None]
